FAERS Safety Report 7537683-3 (Version None)
Quarter: 2011Q2

REPORT INFORMATION
  Report Type: 
  Country: None (occurrence: None)
  Receive Date: 20110609
  Receipt Date: 20071004
  Transmission Date: 20111010
  Serious: Yes (Death, Other)
  Sender: FDA-Public Use
  Company Number: PHMT2007CA01846

PATIENT
  Sex: Female

DRUGS (9)
  1. CLOZARIL [Suspect]
     Indication: SCHIZOPHRENIA
     Dosage: UNK
     Dates: start: 19960719
  2. CLONAZEPAM [Concomitant]
  3. EFFEXOR [Concomitant]
  4. LIPITOR [Concomitant]
  5. WELLBUTRIN SR [Concomitant]
  6. CLOZARIL [Suspect]
     Dosage: 250 MG, UNK
     Route: 048
     Dates: start: 20030701
  7. CELEXA [Concomitant]
  8. TOPAMAX [Concomitant]
  9. SYNTHROID [Concomitant]

REACTIONS (1)
  - COMPLETED SUICIDE [None]
